FAERS Safety Report 8283915 (Version 4)
Quarter: 2013Q1

REPORT INFORMATION
  Report Type: Report from Study
  Country: CA (occurrence: CA)
  Receive Date: 20111212
  Receipt Date: 20130121
  Transmission Date: 20140127
  Serious: Yes (Other)
  Sender: FDA-Public Use
  Company Number: PHHY2009CA23227

PATIENT
  Age: 82 Year
  Sex: Female
  Weight: 74 kg

DRUGS (18)
  1. ACLASTA/ZOLEDRONATE [Suspect]
     Indication: OSTEOPOROSIS
     Dosage: 5 MG, UNK
     Route: 042
     Dates: start: 20090813
  2. ACLASTA/ZOLEDRONATE [Suspect]
     Dosage: 5 MG, UNK
     Route: 042
     Dates: start: 20101125
  3. ACLASTA/ZOLEDRONATE [Suspect]
     Dosage: 5 MG, UNK
     Route: 042
     Dates: start: 20111124
  4. PREDNISON [Concomitant]
     Indication: RHEUMATOID ARTHRITIS
     Dosage: 2.5 MG, QD
     Route: 048
  5. METHOTREXATE [Concomitant]
     Indication: RHEUMATOID ARTHRITIS
     Dosage: 20 MG, UNK
     Route: 048
  6. PANTOLOC [Concomitant]
     Dosage: 30 MG, UNK
  7. ATENOLOL [Concomitant]
     Indication: MIGRAINE
     Dosage: 50 MG, QD
     Route: 048
  8. OXAZEPAM [Concomitant]
     Indication: SLEEP DISORDER
     Dosage: 30 MG, UNK
     Route: 048
  9. DOCUSATE [Concomitant]
     Indication: CONSTIPATION
     Dosage: 300 MG, BID
  10. COUMADINE [Concomitant]
     Dosage: UNK UKN, UNK
  11. LACTULOSE [Concomitant]
     Indication: CONSTIPATION
     Dosage: UNK UKN, UNK
     Route: 048
  12. FOSAVANCE [Concomitant]
     Dosage: 70 MG, UNK
     Dates: start: 20080531, end: 20090813
  13. CALCIUM [Concomitant]
     Dosage: 1 G, BID
  14. TYLENOL [Concomitant]
     Dosage: UNK UKN, UNK
  15. THYROXIN [Concomitant]
     Dosage: 0.125 MG, QD
  16. NITROGLICERINA [Concomitant]
  17. VITAMIN D [Concomitant]
  18. SENNOSIDES A+B [Concomitant]
     Dosage: 8.6 MG, UNK

REACTIONS (6)
  - Blood pressure systolic increased [Unknown]
  - Somnambulism [Recovered/Resolved]
  - Fall [Recovered/Resolved]
  - Rib fracture [Recovered/Resolved]
  - Haemoglobin decreased [Not Recovered/Not Resolved]
  - Red blood cell sedimentation rate increased [Not Recovered/Not Resolved]
